FAERS Safety Report 8472520-4 (Version None)
Quarter: 2012Q2

REPORT INFORMATION
  Report Type: 
  Country: None (occurrence: None)
  Receive Date: 20120627
  Receipt Date: 20111122
  Transmission Date: 20120825
  Serious: No
  Sender: FDA-Public Use
  Company Number: US-AMGEN-USASP2011062062

PATIENT
  Age: 70 Year
  Sex: Female
  Weight: 56.236 kg

DRUGS (11)
  1. TOPAMAX [Concomitant]
     Dosage: 50 UNK, UNK
     Route: 048
  2. PROCRIT [Suspect]
     Indication: RENAL FAILURE CHRONIC
     Dosage: 15000 IU, Q2WK
     Dates: start: 20080101
  3. FUROSEMIDE [Concomitant]
     Indication: FLUID RETENTION
     Dosage: 40 MG, QD
     Route: 048
  4. DIAZEPAM [Concomitant]
     Dosage: 5 MG, QHS
     Route: 048
  5. PROCRIT [Suspect]
     Dosage: 20000 IU, Q2WK
  6. FERROUS SULFATE TAB [Concomitant]
     Indication: ANAEMIA
     Dosage: UNK
     Route: 048
  7. PREVACID [Concomitant]
     Dosage: UNK
     Dates: end: 20110101
  8. ZEGERID                            /00661201/ [Concomitant]
     Dosage: UNK
     Route: 048
  9. DILTIAZEM HYDROCHOLORIDE [Concomitant]
     Indication: CARDIAC FAILURE
     Dosage: 60 MG, BID
     Route: 048
  10. AVAPRO [Concomitant]
     Indication: HYPERTENSION
  11. CALCITROL                          /00508501/ [Concomitant]
     Dosage: UNK
     Route: 048

REACTIONS (6)
  - VITAMIN D DECREASED [None]
  - GOUT [None]
  - MIGRAINE [None]
  - ATRIAL FIBRILLATION [None]
  - ENERGY INCREASED [None]
  - HEADACHE [None]
